FAERS Safety Report 17942199 (Version 1)
Quarter: 2020Q2

REPORT INFORMATION
  Report Type: Spontaneous
  Country: CA (occurrence: CA)
  Receive Date: 20200625
  Receipt Date: 20200625
  Transmission Date: 20200714
  Serious: Yes (Death, Hospitalization, Other)
  Sender: FDA-Public Use
  Company Number: CA-AUROBINDO-AUR-APL-2020-030308

PATIENT
  Age: 71 Year
  Sex: Male

DRUGS (6)
  1. PAMIDRONATE DISODIUM. [Concomitant]
     Active Substance: PAMIDRONATE DISODIUM
     Indication: HYPERCALCAEMIA
     Dosage: UNK
     Route: 065
  2. CINACALCET. [Suspect]
     Active Substance: CINACALCET
     Dosage: 60 MILLIGRAM, ONCE A DAY
     Route: 065
  3. CINACALCET. [Suspect]
     Active Substance: CINACALCET
     Dosage: UNK
     Route: 065
  4. CINACALCET. [Suspect]
     Active Substance: CINACALCET
     Dosage: 120 MILLIGRAM, ONCE A DAY
     Route: 065
  5. XGEVA [Suspect]
     Active Substance: DENOSUMAB
     Indication: HYPERCALCAEMIA
     Dosage: 120 MILLIGRAM
     Route: 058
  6. CINACALCET. [Suspect]
     Active Substance: CINACALCET
     Indication: HYPERPARATHYROIDISM
     Dosage: 30 MILLIGRAM, ONCE A DAY
     Route: 065

REACTIONS (10)
  - Acute myocardial infarction [Fatal]
  - Anuria [Fatal]
  - Hypercalcaemia [Fatal]
  - Infection [Fatal]
  - Hypoalbuminaemia [Fatal]
  - Gastrointestinal disorder [Fatal]
  - Mobility decreased [Fatal]
  - Hypocalcaemia [Fatal]
  - Off label use [Fatal]
  - Drug ineffective for unapproved indication [Fatal]
